FAERS Safety Report 8332565-1 (Version None)
Quarter: 2012Q2

REPORT INFORMATION
  Report Type: 
  Country: None (occurrence: None)
  Receive Date: 20120503
  Receipt Date: 20120418
  Transmission Date: 20120825
  Serious: Yes (Hospitalization)
  Sender: FDA-Public Use
  Company Number: BR-JNJFOC-20120501254

PATIENT
  Sex: Female
  Weight: 70 kg

DRUGS (6)
  1. TRAMADOL HYDROCHLORIDE [Suspect]
     Indication: PRODUCT USED FOR UNKNOWN INDICATION
     Route: 065
  2. RUTOSIDE [Concomitant]
     Route: 065
  3. ALDACTONE [Concomitant]
     Route: 065
  4. LOSARTAN POTASSIUM [Concomitant]
     Route: 065
  5. MELILOTUS OFFICINALIS [Concomitant]
     Route: 065
  6. LYRICA [Suspect]
     Indication: PAIN IN EXTREMITY
     Route: 048
     Dates: start: 20120416, end: 20120417

REACTIONS (4)
  - DIZZINESS [None]
  - TREMOR [None]
  - INSOMNIA [None]
  - BLOOD POTASSIUM INCREASED [None]
